FAERS Safety Report 24793475 (Version 1)
Quarter: 2024Q4

REPORT INFORMATION
  Report Type: Spontaneous
  Country: PT (occurrence: PT)
  Receive Date: 20241231
  Receipt Date: 20241231
  Transmission Date: 20250115
  Serious: Yes (Life-Threatening, Hospitalization)
  Sender: MYLAN
  Company Number: PT-MYLANLABS-2024M1115956

PATIENT
  Age: 54 Year
  Sex: Male

DRUGS (1)
  1. METHOTREXATE [Suspect]
     Active Substance: METHOTREXATE
     Indication: Psoriasis
     Dosage: 7.5 MILLIGRAM, QD {PRESCRIBED: 12/12H ONCE PER WEEK; HOWEVER.....
     Route: 065

REACTIONS (10)
  - Inappropriate schedule of product administration [Recovering/Resolving]
  - Product communication issue [Recovering/Resolving]
  - Treatment noncompliance [Recovering/Resolving]
  - Pneumonitis [Recovering/Resolving]
  - Neutropenia [Recovering/Resolving]
  - Pancytopenia [Recovering/Resolving]
  - Septic shock [Recovering/Resolving]
  - Renal failure [Recovering/Resolving]
  - Respiratory failure [Recovering/Resolving]
  - Cardiac failure [Recovering/Resolving]
